FAERS Safety Report 10358686 (Version 2)
Quarter: 2014Q3

REPORT INFORMATION
  Report Type: Spontaneous
  Country: US (occurrence: US)
  Receive Date: 20140804
  Receipt Date: 20140804
  Transmission Date: 20150326
  Serious: Yes (Other)
  Sender: FDA-Public Use
  Company Number: US-ROCHE-1318567

PATIENT
  Age: 61 Year
  Sex: Female
  Weight: 89.89 kg

DRUGS (54)
  1. TAXOL [Suspect]
     Active Substance: PACLITAXEL
     Indication: BREAST CANCER METASTATIC
     Dosage: 3 WEEKS ON AND 1 WEEK OFF
     Route: 042
     Dates: start: 20130729, end: 20140217
  2. FLAGYL [Concomitant]
     Active Substance: METRONIDAZOLE\METRONIDAZOLE HYDROCHLORIDE
     Route: 065
     Dates: start: 20120330, end: 20120823
  3. ALOXI [Concomitant]
     Active Substance: PALONOSETRON HYDROCHLORIDE
     Dosage: DAILY SHORT OVER 20 MINUTES FOR 1 DAY?LAST RECENT DOSE GIVEN ON: 16/DEC/2013
     Route: 042
     Dates: start: 20131216, end: 20140113
  4. BEVACIZUMAB [Concomitant]
     Active Substance: BEVACIZUMAB
     Dosage: 10.4 MG/KG DAILY INTERMITTENT OVER 60 MINUTES FOR 1 DAY IN NORMAL SALINE 100 ML, LAST ADMINISTERED O
     Route: 042
     Dates: start: 20130729, end: 20130930
  5. METANX [Concomitant]
     Active Substance: LEVOMEFOLATE CALCIUM\METHYLCOBALAMIN\PYRIDOXAL PHOSPHATE ANHYDROUS
     Dosage: 3-35-2 MG 1 TABLET DAILY FOR 30 DAYS
     Route: 048
     Dates: start: 20130718, end: 20140213
  6. TRIAMCINOLONE ACETONIDE. [Concomitant]
     Active Substance: TRIAMCINOLONE ACETONIDE
     Route: 061
     Dates: start: 20130613, end: 20131126
  7. METANX [Concomitant]
     Active Substance: LEVOMEFOLATE CALCIUM\METHYLCOBALAMIN\PYRIDOXAL PHOSPHATE ANHYDROUS
     Dosage: 3-35-2 MG
     Route: 048
     Dates: start: 20140401
  8. TRICOR (UNITED STATES) [Concomitant]
     Route: 048
  9. DIFLUCAN [Concomitant]
     Active Substance: FLUCONAZOLE
     Route: 065
     Dates: start: 20130819, end: 20130923
  10. EMLA [Concomitant]
     Active Substance: LIDOCAINE\PRILOCAINE
     Dosage: 1 -2 DROPS ONCE AS NEEDED
     Route: 065
     Dates: start: 20111229, end: 20120101
  11. KEFLEX [Concomitant]
     Active Substance: CEPHALEXIN
     Dosage: 2 TIMES A DAY FOR 7 DAYS
     Route: 048
     Dates: start: 20130903, end: 20130910
  12. FLONASE [Concomitant]
     Active Substance: FLUTICASONE PROPIONATE
     Dosage: AS NEEDED
     Route: 045
     Dates: start: 20110307
  13. HERCEPTIN [Suspect]
     Active Substance: TRASTUZUMAB
     Indication: BREAST CANCER METASTATIC
     Dosage: LAST RECENT DOSE GIVEN ON : 18/JUN/2014
     Route: 042
     Dates: start: 20110124, end: 20140217
  14. BENICAR [Concomitant]
     Active Substance: OLMESARTAN MEDOXOMIL
     Dosage: 1 TABLET DAILY
     Route: 048
  15. VITAMIN D3 [Concomitant]
     Active Substance: CHOLECALCIFEROL
     Route: 048
  16. DECADRON [Concomitant]
     Active Substance: DEXAMETHASONE
  17. ARIMIDEX [Concomitant]
     Active Substance: ANASTROZOLE
     Route: 048
     Dates: end: 20130821
  18. BACTRIM DS [Concomitant]
     Active Substance: SULFAMETHOXAZOLE\TRIMETHOPRIM
     Dosage: 1 TABLET OF 800 - 1600 MG TWO TIMES A DAY FOR 7 DAYS
     Route: 048
     Dates: start: 20130718, end: 20130725
  19. NORMAL SALINE [Concomitant]
     Active Substance: SODIUM CHLORIDE
     Dosage: LAST ADMINISTERED ON : 26/AUG/2013
     Route: 042
     Dates: start: 20130729, end: 20130930
  20. PROMETHAZINE HCL [Concomitant]
     Active Substance: PROMETHAZINE HYDROCHLORIDE
     Dosage: AS NEEDED
     Route: 048
     Dates: end: 20130307
  21. VITAMIN B COMPLEX [Concomitant]
     Active Substance: CYANOCOBALAMIN\DEXPANTHENOL\NIACINAMIDE\PYRIDOXINE HYDROCHLORIDE\RIBOFLAVIN 5^-PHOSPHATE SODIUM\THIAMINE HYDROCHLORIDE\VITAMIN B COMPLEX
     Route: 048
     Dates: end: 20130613
  22. ZOFRAN ODT [Concomitant]
     Active Substance: ONDANSETRON HYDROCHLORIDE
     Route: 065
     Dates: start: 20130729
  23. ANASTROZOLE. [Concomitant]
     Active Substance: ANASTROZOLE
     Route: 048
     Dates: start: 20110518, end: 20130801
  24. ZOFRAN [Concomitant]
     Active Substance: ONDANSETRON HYDROCHLORIDE
     Dosage: 1 TABLET AS NEEDED
     Route: 048
     Dates: end: 20140110
  25. DIPHENHYDRAMINE HCL [Concomitant]
     Active Substance: DIPHENHYDRAMINE HYDROCHLORIDE
     Dosage: LAST RECENT DOSE GIVEN ON: 17/FEB/2014
     Route: 065
     Dates: start: 20130729
  26. FOLIC ACID. [Concomitant]
     Active Substance: FOLIC ACID
     Dosage: DAILY
     Route: 048
     Dates: end: 20110823
  27. AVASTIN [Suspect]
     Active Substance: BEVACIZUMAB
     Indication: BREAST CANCER METASTATIC
     Route: 042
     Dates: start: 20130729, end: 20131008
  28. AMBIEN [Concomitant]
     Active Substance: ZOLPIDEM TARTRATE
     Dosage: TABLETS AS DIRECTED
     Route: 048
     Dates: start: 20131126, end: 20140618
  29. ATIVAN [Concomitant]
     Active Substance: LORAZEPAM
     Dosage: ONE TABLET AS NEEDED
     Route: 048
     Dates: start: 20130819, end: 20140618
  30. ATIVAN [Concomitant]
     Active Substance: LORAZEPAM
     Dosage: 0.5 TO 1 MG OF ONE TABLET OF 1 MG THREE TIMES A DAY FOR 4 WEEKS AS NEEDED
     Route: 048
     Dates: start: 20130718, end: 20130815
  31. AUGMENTIN [Concomitant]
     Active Substance: AMOXICILLIN\CLAVULANATE POTASSIUM
     Dosage: 1 TABLET OF 875- 125 MG TWO TIMES A DAY FOR 5 DAYS
     Route: 048
     Dates: start: 20120320, end: 20120330
  32. PEPCID [Concomitant]
     Active Substance: FAMOTIDINE
     Dosage: DAILY PUSH OVER 2 MINUTES FOR 1 DAY?LAST RECENT DOSE GIVEN ON: 17/FEB/2014
     Route: 050
     Dates: start: 20130729, end: 20140217
  33. ZOLPIDEM TARTRATE. [Concomitant]
     Active Substance: ZOLPIDEM TARTRATE
     Dosage: AS NEEDED
     Route: 048
     Dates: end: 20130613
  34. SINGULAIR [Concomitant]
     Active Substance: MONTELUKAST SODIUM
     Indication: RHINITIS
     Route: 048
  35. XANAX [Concomitant]
     Active Substance: ALPRAZOLAM
     Dosage: 0.5 TO 1 TABLET OF 0.5 MG AT BEDTIME
     Route: 048
     Dates: start: 20140110
  36. ALEVE [Concomitant]
     Active Substance: NAPROXEN SODIUM
     Dosage: 1 TABLET DAILY AS NEEDED
     Route: 048
  37. PACLITAXEL. [Concomitant]
     Active Substance: PACLITAXEL
     Dosage: AT 912.5842 MG/M2 SHORT OVER 60 MINUTES FOR 1 DAY DAILY?LAST RECENT DOSE GIVEN ON: 17/FEB/2014
     Route: 042
     Dates: start: 20130729, end: 20140217
  38. VITAMIN C [Concomitant]
     Active Substance: ASCORBIC ACID
     Route: 048
     Dates: end: 20130821
  39. AVASTIN [Suspect]
     Active Substance: BEVACIZUMAB
     Indication: CHEMOTHERAPY
  40. DEXAMETHASONE. [Concomitant]
     Active Substance: DEXAMETHASONE
     Dosage: 1 TABLET AS NEEDED
     Route: 048
     Dates: start: 20130718, end: 20140110
  41. LORTAB [Concomitant]
     Active Substance: ACETAMINOPHEN\HYDROCODONE BITARTRATE
     Dosage: 5 -500 MG ONE  TABLET AS NEEDED
     Route: 048
     Dates: start: 20130801
  42. AROMASIN [Concomitant]
     Active Substance: EXEMESTANE
     Indication: CHEMOTHERAPY
     Dosage: 1 TABLET
     Route: 048
     Dates: start: 20140331
  43. ARIMIDEX [Concomitant]
     Active Substance: ANASTROZOLE
     Route: 048
     Dates: start: 20110214, end: 20130801
  44. CARAFATE [Concomitant]
     Active Substance: SUCRALFATE
     Dosage: AS NEEDED
     Route: 048
     Dates: end: 20131126
  45. MAGNESIUM OXIDE. [Concomitant]
     Active Substance: MAGNESIUM OXIDE
     Route: 048
     Dates: end: 20110307
  46. NASOCORT [Concomitant]
     Active Substance: TRIAMCINOLONE ACETONIDE
     Route: 050
     Dates: end: 20110307
  47. PRILOSEC OTC [Concomitant]
     Active Substance: OMEPRAZOLE MAGNESIUM
     Route: 048
  48. XANAX [Concomitant]
     Active Substance: ALPRAZOLAM
     Route: 065
     Dates: start: 20130410
  49. TYLENOL [Concomitant]
     Active Substance: ACETAMINOPHEN
  50. DEXAMETHASONE SODIUM PHOSPHATE [Concomitant]
     Active Substance: DEXAMETHASONE SODIUM PHOSPHATE
     Dosage: LAST RECENT DOSE ON:17/FEB/2014
     Route: 065
     Dates: start: 20130729
  51. KYTRIL [Concomitant]
     Active Substance: GRANISETRON HYDROCHLORIDE
     Route: 065
     Dates: start: 20130729, end: 20140217
  52. AUGMENTIN [Concomitant]
     Active Substance: AMOXICILLIN\CLAVULANATE POTASSIUM
     Dosage: 1 TABLET OF 875- 125 MG TWO TIMES A DAY FOR 5 DAYS
     Route: 048
     Dates: start: 20130819, end: 20140618
  53. CIPRO [Concomitant]
     Active Substance: CIPROFLOXACIN HYDROCHLORIDE
     Dosage: 2 TIMES A DAY FOR 10 DAYS
     Route: 048
     Dates: start: 20130718, end: 20130718
  54. ASPIRIN. [Concomitant]
     Active Substance: ASPIRIN
     Route: 048
     Dates: end: 20130821

REACTIONS (1)
  - Nasal septum perforation [Recovered/Resolved]

NARRATIVE: CASE EVENT DATE: 20131219
